FAERS Safety Report 6313106-7 (Version None)
Quarter: 2009Q3

REPORT INFORMATION
  Report Type: 
  Country: None (occurrence: None)
  Receive Date: 20090814
  Receipt Date: 20090729
  Transmission Date: 20100115
  Serious: Yes (Death)
  Sender: FDA-Public Use
  Company Number: 2009-091

PATIENT
  Age: 89 Year
  Sex: Female

DRUGS (23)
  1. FAZACLO ODT [Suspect]
     Dosage: 25 MG QHS PO
     Route: 048
     Dates: start: 20090609, end: 20090619
  2. ACETAMINOPHEN SUPP. [Concomitant]
  3. ASPIRIN [Concomitant]
  4. BRIMONIDINE EYE DROPS [Concomitant]
  5. CALGEST [Concomitant]
  6. DIVALOPROEX [Concomitant]
  7. TRUSOPT [Concomitant]
  8. GLIPIZIDE [Concomitant]
  9. GLUCAGON KIT [Concomitant]
  10. HYDROCODONE [Concomitant]
  11. LEVAQUIN [Concomitant]
  12. KLOR-CON [Concomitant]
  13. LORAZEPAM [Concomitant]
  14. METFORMIN HCL [Concomitant]
  15. MOM [Concomitant]
  16. SIMVASTATIN [Concomitant]
  17. SYMBICORT [Concomitant]
  18. TORESMIDE [Concomitant]
  19. TRIPLE ANTIBIOTIC OINT [Concomitant]
  20. MIRTAZAPINE [Concomitant]
  21. OXYTROL [Concomitant]
  22. POLYETHYLENE GLYCOL [Concomitant]
  23. SERTRALINE HCL [Concomitant]

REACTIONS (1)
  - DEATH [None]
